FAERS Safety Report 5834108-0 (Version None)
Quarter: 2008Q3

REPORT INFORMATION
  Report Type: 
  Country: None (occurrence: None)
  Receive Date: 20080805
  Receipt Date: 20080731
  Transmission Date: 20090109
  Serious: Yes (Hospitalization)
  Sender: FDA-Public Use
  Company Number: US-ASTRAZENECA-2008UW15081

PATIENT
  Age: 11 Year
  Sex: Male

DRUGS (5)
  1. SEROQUEL [Suspect]
     Route: 048
  2. WELLBUTRIN [Concomitant]
  3. RITALIN [Concomitant]
  4. CONCERTA [Concomitant]
  5. LEXAPRO [Concomitant]

REACTIONS (1)
  - LEUKOPENIA [None]
